FAERS Safety Report 8825127 (Version 3)
Quarter: 2015Q2

REPORT INFORMATION
  Report Type: Report from Study
  Country: US (occurrence: US)
  Receive Date: 20121004
  Receipt Date: 20150626
  Transmission Date: 20150821
  Serious: Yes (Death)
  Sender: FDA-Public Use
  Company Number: US-ROCHE-1134002

PATIENT
  Age: 81 Year
  Sex: Male

DRUGS (2)
  1. RITUXAN [Suspect]
     Active Substance: RITUXIMAB
     Indication: OFF LABEL USE
  2. RITUXAN [Suspect]
     Active Substance: RITUXIMAB
     Indication: HAEMOLYTIC ANAEMIA
     Route: 042
     Dates: start: 20050523

REACTIONS (1)
  - Death [Fatal]

NARRATIVE: CASE EVENT DATE: 20091015
